FAERS Safety Report 16981114 (Version 5)
Quarter: 2021Q2

REPORT INFORMATION
  Report Type: Report from Study
  Country: FR (occurrence: FR)
  Receive Date: 20191031
  Receipt Date: 20210409
  Transmission Date: 20210716
  Serious: Yes (Hospitalization, Other)
  Sender: FDA-Public Use
  Company Number: FR-JAZZ-2019-FR-015006

PATIENT

DRUGS (1)
  1. DEFITELIO [Suspect]
     Active Substance: DEFIBROTIDE SODIUM
     Indication: VENOOCCLUSIVE LIVER DISEASE
     Dosage: 25 MG/KG/DAY
     Route: 065
     Dates: start: 20170830, end: 20170921

REACTIONS (12)
  - Hepatic cytolysis [Unknown]
  - Haemangioma [Unknown]
  - Sensory loss [Unknown]
  - Pain [Unknown]
  - Hepatomegaly [Unknown]
  - Consciousness fluctuating [Unknown]
  - Abnormal behaviour [Unknown]
  - Fall [Unknown]
  - Off label use [Unknown]
  - Hepatic function abnormal [Unknown]
  - Splenomegaly [Unknown]
  - Jaundice cholestatic [Unknown]

NARRATIVE: CASE EVENT DATE: 20170830
